FAERS Safety Report 5093479-6 (Version None)
Quarter: 2006Q3

REPORT INFORMATION
  Report Type: 
  Country: None (occurrence: None)
  Receive Date: 20060829
  Receipt Date: 20060814
  Transmission Date: 20061208
  Serious: Yes (Life-Threatening, Hospitalization, Other)
  Sender: FDA-Public Use
  Company Number: PAR_0748_2006

PATIENT
  Age: 10 Month
  Sex: Female

DRUGS (1)
  1. CITALOPRAM HYDROBROMIDE [Suspect]
     Dosage: 50 TAB ONCE

REACTIONS (3)
  - ACCIDENTAL DRUG INTAKE BY CHILD [None]
  - GRAND MAL CONVULSION [None]
  - NYSTAGMUS [None]
